FAERS Safety Report 24798248 (Version 6)
Quarter: 2025Q3

REPORT INFORMATION
  Report Type: Report from Study
  Country: CA (occurrence: CA)
  Receive Date: 20250102
  Receipt Date: 20250926
  Transmission Date: 20251020
  Serious: Yes (Other)
  Sender: TAKEDA
  Company Number: CA-TAKEDA-2024TUS124418

PATIENT
  Age: 55 Year
  Sex: Female

DRUGS (10)
  1. VEDOLIZUMAB [Suspect]
     Active Substance: VEDOLIZUMAB
     Indication: Crohn^s disease
  2. VEDOLIZUMAB [Suspect]
     Active Substance: VEDOLIZUMAB
  3. VEDOLIZUMAB [Suspect]
     Active Substance: VEDOLIZUMAB
  4. VEDOLIZUMAB [Suspect]
     Active Substance: VEDOLIZUMAB
     Dosage: 300 MILLIGRAM, Q4WEEKS
     Dates: start: 20250922
  5. PANTOPRAZOLE SODIUM [Suspect]
     Active Substance: PANTOPRAZOLE SODIUM
     Indication: Product used for unknown indication
  6. RINVOQ [Concomitant]
     Active Substance: UPADACITINIB
  7. Brimodine [Concomitant]
  8. PANTOPRAZOLE MAGNESIUM [Concomitant]
     Active Substance: PANTOPRAZOLE MAGNESIUM
     Dosage: 40 MILLIGRAM, BID
  9. Reactine [Concomitant]
  10. JARDIANCE [Concomitant]
     Active Substance: EMPAGLIFLOZIN

REACTIONS (10)
  - Pneumonia [Recovered/Resolved]
  - Drug ineffective [Unknown]
  - Gastrointestinal viral infection [Unknown]
  - Frequent bowel movements [Unknown]
  - Diarrhoea [Unknown]
  - Defaecation urgency [Unknown]
  - Anal incontinence [Unknown]
  - Abdominal pain lower [Unknown]
  - Off label use [Unknown]
  - Arthralgia [Unknown]

NARRATIVE: CASE EVENT DATE: 20250922
